FAERS Safety Report 9478156 (Version 3)
Quarter: 2013Q3

REPORT INFORMATION
  Report Type: Spontaneous
  Country: FR (occurrence: FR)
  Receive Date: 20130827
  Receipt Date: 20130909
  Transmission Date: 20140515
  Serious: Yes (Hospitalization)
  Sender: FDA-Public Use
  Company Number: FR-RANBAXY-2013RR-72353

PATIENT
  Age: 17 Year
  Sex: Female

DRUGS (3)
  1. PARACETAMOL [Suspect]
     Indication: PRODUCT USED FOR UNKNOWN INDICATION
     Dosage: } 10 G
     Route: 048
  2. ALPRAZOLAM [Concomitant]
     Indication: PRODUCT USED FOR UNKNOWN INDICATION
     Dosage: SEVERAL TABLETS
     Route: 065
  3. CEFPODOXIME [Concomitant]
     Indication: PRODUCT USED FOR UNKNOWN INDICATION
     Dosage: SEVERAL TABLETS
     Route: 065

REACTIONS (3)
  - Renal failure acute [Recovered/Resolved]
  - Acute hepatic failure [Recovered/Resolved]
  - Intentional overdose [Recovered/Resolved]
